FAERS Safety Report 12114247 (Version 2)
Quarter: 2016Q2

REPORT INFORMATION
  Report Type: Other
  Country: US (occurrence: US)
  Receive Date: 20160225
  Receipt Date: 20160420
  Transmission Date: 20160815
  Serious: No
  Sender: FDA-Public Use
  Company Number: US-SHIRE-US201601519

PATIENT
  Sex: Female
  Weight: 61.22 kg

DRUGS (2)
  1. GATTEX [Suspect]
     Active Substance: TEDUGLUTIDE\WATER
     Indication: SHORT-BOWEL SYNDROME
     Dosage: 0.033 ML, 1X/DAY:QD
     Route: 058
     Dates: start: 20160110, end: 20160211
  2. GATTEX [Suspect]
     Active Substance: TEDUGLUTIDE\WATER
     Dosage: 0.16 ML, 1X/DAY:QD
     Route: 058
     Dates: start: 20160211, end: 20160308

REACTIONS (4)
  - Fluid overload [Unknown]
  - Peripheral swelling [Unknown]
  - Fluid retention [Unknown]
  - Joint swelling [Unknown]
